FAERS Safety Report 7591033-5 (Version None)
Quarter: 2011Q3

REPORT INFORMATION
  Report Type: 
  Country: None (occurrence: None)
  Receive Date: 20110705
  Receipt Date: 20110630
  Transmission Date: 20111222
  Serious: Yes (Hospitalization, Disabling, Other)
  Sender: FDA-Public Use
  Company Number: US-PFIZER INC-2011070815

PATIENT
  Sex: Female

DRUGS (2)
  1. CHANTIX [Suspect]
     Indication: SMOKING CESSATION THERAPY
     Dosage: 0.5 MG, UNK
     Dates: start: 20090307, end: 20090407
  2. ALBUTEROL SULFATE AUTOHALER [Concomitant]
     Indication: ASTHMA
     Dosage: UNK
     Dates: start: 20000101

REACTIONS (13)
  - BIPOLAR DISORDER [None]
  - CONVULSION [None]
  - MENTAL DISORDER [None]
  - POST-TRAUMATIC STRESS DISORDER [None]
  - HALLUCINATION [None]
  - INSOMNIA [None]
  - LOSS OF CONSCIOUSNESS [None]
  - AMNESIA [None]
  - NIGHTMARE [None]
  - PANIC ATTACK [None]
  - SUICIDAL BEHAVIOUR [None]
  - ANXIETY [None]
  - DEPRESSION [None]
